FAERS Safety Report 15882037 (Version 1)
Quarter: 2019Q1

REPORT INFORMATION
  Report Type: Report from Study
  Country: US (occurrence: US)
  Receive Date: 20190128
  Receipt Date: 20190128
  Transmission Date: 20190417
  Serious: Yes (Congenital Anomaly, Other)
  Sender: FDA-Public Use
  Company Number: US-JNJFOC-20190127638

PATIENT

DRUGS (3)
  1. USTEKINUMAB [Suspect]
     Active Substance: USTEKINUMAB
     Indication: CROHN^S DISEASE
     Route: 064
  2. USTEKINUMAB [Suspect]
     Active Substance: USTEKINUMAB
     Indication: PSORIASIS
     Route: 064
  3. USTEKINUMAB [Suspect]
     Active Substance: USTEKINUMAB
     Indication: PSORIATIC ARTHROPATHY
     Route: 064

REACTIONS (18)
  - Cardiac haemangioma benign [Unknown]
  - Congenital absence of cranial vault [Unknown]
  - Right aortic arch [Unknown]
  - Congenital cyst [Unknown]
  - Cleft palate [Unknown]
  - Ankyloglossia congenital [Unknown]
  - Atrioventricular septal defect [Unknown]
  - Fallot^s tetralogy [Unknown]
  - Atrial septal defect [Unknown]
  - Congenital anomaly [Unknown]
  - Ventricular septal defect [Unknown]
  - Premature baby [Not Recovered/Not Resolved]
  - Cytogenetic abnormality [Unknown]
  - Vascular malformation [Unknown]
  - Foetal exposure during pregnancy [Recovered/Resolved]
  - Aortic stenosis [Unknown]
  - Haemangioma [Unknown]
  - Craniosynostosis [Unknown]
